FAERS Safety Report 18205282 (Version 6)
Quarter: 2021Q4

REPORT INFORMATION
  Report Type: Report from Study
  Country: None (occurrence: FR)
  Receive Date: 20200828
  Receipt Date: 20211028
  Transmission Date: 20220303
  Serious: Yes (Other)
  Sender: FDA-Public Use
  Company Number: FR-ABBVIE-19K-056-2834438-00

PATIENT
  Age: 82 Year
  Sex: Female
  Weight: 54 kg

DRUGS (12)
  1. IMBRUVICA [Suspect]
     Active Substance: IBRUTINIB
     Indication: Chronic lymphocytic leukaemia
     Route: 048
     Dates: start: 20140903, end: 20190718
  2. VENETOCLAX [Suspect]
     Active Substance: VENETOCLAX
     Indication: Chronic lymphocytic leukaemia
     Route: 048
     Dates: start: 20190620, end: 20190626
  3. VENETOCLAX [Suspect]
     Active Substance: VENETOCLAX
     Route: 048
     Dates: start: 20190627, end: 20190703
  4. VENETOCLAX [Suspect]
     Active Substance: VENETOCLAX
     Route: 048
     Dates: start: 20190704, end: 20190724
  5. VENETOCLAX [Suspect]
     Active Substance: VENETOCLAX
     Route: 048
     Dates: start: 20190725, end: 20190731
  6. VENETOCLAX [Suspect]
     Active Substance: VENETOCLAX
     Route: 048
     Dates: start: 20190801
  7. VALACYCLOVIR HYDROCHLORIDE [Concomitant]
     Active Substance: VALACYCLOVIR HYDROCHLORIDE
     Indication: Antiviral prophylaxis
     Dates: start: 2014
  8. ALLOPURINOL [Concomitant]
     Active Substance: ALLOPURINOL
     Indication: Prophylaxis
     Dates: start: 20190618
  9. ZESTORETIC [Concomitant]
     Active Substance: HYDROCHLOROTHIAZIDE\LISINOPRIL
     Indication: Hypertension
     Dates: start: 2011
  10. LEUCOVORIN CALCIUM [Concomitant]
     Active Substance: LEUCOVORIN CALCIUM
     Indication: Prophylaxis
     Dates: start: 2011
  11. RITUXIMAB [Concomitant]
     Active Substance: RITUXIMAB
     Indication: Chronic lymphocytic leukaemia
     Dates: start: 20190809
  12. SULFAMETHOXAZOLE;TRIMIPRAMINE [Concomitant]
     Indication: Infection prophylaxis
     Dates: start: 2014

REACTIONS (8)
  - Spinal cord compression [Recovered/Resolved with Sequelae]
  - Chronic lymphocytic leukaemia [Unknown]
  - Back pain [Recovered/Resolved with Sequelae]
  - Humerus fracture [Recovering/Resolving]
  - Thrombocytopenia [Recovered/Resolved]
  - Neutropenia [Not Recovered/Not Resolved]
  - Pain in extremity [Not Recovered/Not Resolved]
  - Off label use [Not Recovered/Not Resolved]

NARRATIVE: CASE EVENT DATE: 20190619
